FAERS Safety Report 8349852-3 (Version None)
Quarter: 2012Q2

REPORT INFORMATION
  Report Type: 
  Country: None (occurrence: None)
  Receive Date: 20120510
  Receipt Date: 20120501
  Transmission Date: 20120825
  Serious: Yes (Hospitalization)
  Sender: FDA-Public Use
  Company Number: NL-MEDIMMUNE-MEDI-0014796

PATIENT
  Sex: Male
  Weight: 6.3 kg

DRUGS (2)
  1. SYNAGIS [Suspect]
     Indication: BRONCHOPULMONARY DYSPLASIA
     Route: 030
     Dates: start: 20110905, end: 20111128
  2. SYNAGIS [Suspect]
     Route: 030
     Dates: start: 20120202

REACTIONS (2)
  - VIRAL INFECTION [None]
  - GASTROINTESTINAL DISORDER [None]
